FAERS Safety Report 9313051 (Version 1)
Quarter: 2013Q2

REPORT INFORMATION
  Report Type: Spontaneous
  Country: US (occurrence: US)
  Receive Date: 20130528
  Receipt Date: 20130528
  Transmission Date: 20140414
  Serious: No
  Sender: FDA-Public Use
  Company Number: US-ABBOTT-13P-163-1079308-00

PATIENT
  Age: 59 Year
  Sex: Male
  Weight: 119.86 kg

DRUGS (11)
  1. ANDROGEL [Suspect]
     Indication: BLOOD TESTOSTERONE DECREASED
     Route: 061
     Dates: start: 201205, end: 201303
  2. ANDROGEL [Suspect]
     Route: 061
     Dates: start: 201303
  3. METFORMIN [Concomitant]
     Indication: DIABETES MELLITUS
  4. LEVOTHYROXINE [Concomitant]
     Indication: HYPOTHYROIDISM
  5. LISINOPRIL [Concomitant]
     Indication: HYPERTENSION
  6. PRAVASTATIN [Concomitant]
     Indication: BLOOD CHOLESTEROL INCREASED
  7. HYDROCHLOROTHIAZIDE [Concomitant]
     Indication: HYPERTENSION
  8. K-LOR [Concomitant]
     Indication: SUPPLEMENTATION THERAPY
  9. FUROSEMIDE [Concomitant]
     Indication: FLUID RETENTION
  10. SERTRALINE [Concomitant]
     Indication: DEPRESSION
  11. BYETTA [Concomitant]
     Indication: DIABETES MELLITUS

REACTIONS (2)
  - Blood testosterone decreased [Not Recovered/Not Resolved]
  - Drug ineffective [Not Recovered/Not Resolved]
